FAERS Safety Report 5844861-8 (Version None)
Quarter: 2008Q3

REPORT INFORMATION
  Report Type: 
  Country: None (occurrence: None)
  Receive Date: 20080812
  Receipt Date: 20070423
  Transmission Date: 20090109
  Serious: Yes (Hospitalization)
  Sender: FDA-Public Use
  Company Number: GXKR2007ES03728

PATIENT
  Age: 69 Year
  Sex: Male

DRUGS (8)
  1. SIMVASTATIN [Suspect]
     Indication: HYPERCHOLESTEROLAEMIA
  2. ACENOCOUMAROL (NGX) (ACENOCOUMAROL) UNKNOWN [Suspect]
     Indication: PULMONARY EMBOLISM
  3. DILTIAZEM [Concomitant]
  4. REPAGLINIDE [Concomitant]
  5. CYCLOSPORINE [Concomitant]
  6. AZATHIOPRINE [Concomitant]
  7. PENTOXIFYLLINE [Concomitant]
  8. PANTOPRAZOLE SODIUM [Concomitant]

REACTIONS (2)
  - DRUG INTERACTION [None]
  - RHABDOMYOLYSIS [None]
